FAERS Safety Report 24267757 (Version 1)
Quarter: 2024Q3

REPORT INFORMATION
  Report Type: Other
  Country: FR (occurrence: FR)
  Receive Date: 20240830
  Receipt Date: 20240830
  Transmission Date: 20241017
  Serious: No
  Sender: SIGA TECHNOLOGIES
  Company Number: FR-SIGA Technologies, Inc.-2161012

PATIENT

DRUGS (1)
  1. TPOXX [Suspect]
     Active Substance: TECOVIRIMAT
     Indication: Monkeypox

REACTIONS (2)
  - Neutropenia [Unknown]
  - Thrombocytopenia [Unknown]
